FAERS Safety Report 15929742 (Version 1)
Quarter: 2019Q1

REPORT INFORMATION
  Report Type: Spontaneous
  Country: PL (occurrence: PL)
  Receive Date: 20190206
  Receipt Date: 20190206
  Transmission Date: 20190417
  Serious: Yes (Life-Threatening, Hospitalization, Disabling, Other)
  Sender: FDA-Public Use
  Company Number: PHHY2019PL027591

PATIENT
  Age: 67 Year
  Sex: Female

DRUGS (9)
  1. FUROSEMIDE. [Interacting]
     Active Substance: FUROSEMIDE
     Indication: PRODUCT USED FOR UNKNOWN INDICATION
     Dosage: 120 MG, QD
     Route: 042
     Dates: start: 20181012, end: 20181015
  2. BETALOC [Interacting]
     Active Substance: METOPROLOL TARTRATE
     Indication: PRODUCT USED FOR UNKNOWN INDICATION
     Dosage: 2.5 MG, QD
     Route: 042
     Dates: start: 20181013, end: 20181015
  3. CORDARONE [Interacting]
     Active Substance: AMIODARONE HYDROCHLORIDE
     Indication: PRODUCT USED FOR UNKNOWN INDICATION
     Dosage: 1200 MG, QD
     Route: 042
     Dates: start: 20181014, end: 20181015
  4. PYRALGIN [Interacting]
     Active Substance: DIPYRONE
     Indication: PRODUCT USED FOR UNKNOWN INDICATION
     Dosage: 2.5 MG, QD
     Route: 042
     Dates: start: 20181015, end: 20181016
  5. VANCOMYCIN [Suspect]
     Active Substance: VANCOMYCIN
     Indication: PRODUCT USED FOR UNKNOWN INDICATION
     Dosage: 2 G, QD
     Route: 042
     Dates: start: 20181015, end: 20181015
  6. DIGOXIN. [Interacting]
     Active Substance: DIGOXIN
     Indication: TACHYCARDIA
     Dosage: LOADING DOSE OF 0.5 MG AT 12:30, THEN THE MAINTENANCE DOSE OF 0.5 MG WAS GIVEN AT 13:30
     Route: 042
  7. GENSULIN R [Concomitant]
     Active Substance: INSULIN HUMAN
     Indication: PRODUCT USED FOR UNKNOWN INDICATION
     Dosage: UNK
     Route: 065
  8. BETALOC [Interacting]
     Active Substance: METOPROLOL TARTRATE
     Dosage: 20 MG, QD
     Route: 042
  9. MEROPENEM. [Concomitant]
     Active Substance: MEROPENEM
     Indication: PRODUCT USED FOR UNKNOWN INDICATION
     Dosage: 3 G, QD
     Route: 042
     Dates: start: 20181014, end: 20181015

REACTIONS (4)
  - Toxicity to various agents [Recovered/Resolved with Sequelae]
  - Drug ineffective [Recovered/Resolved with Sequelae]
  - Drug interaction [Recovered/Resolved with Sequelae]
  - Overdose [Unknown]

NARRATIVE: CASE EVENT DATE: 20181015
